FAERS Safety Report 7200998-2 (Version None)
Quarter: 2010Q4

REPORT INFORMATION
  Report Type: 
  Country: None (occurrence: None)
  Receive Date: 20101228
  Receipt Date: 20101220
  Transmission Date: 20110411
  Serious: Yes (Hospitalization)
  Sender: FDA-Public Use
  Company Number: US-NOVOPROD-320549

PATIENT
  Sex: Female
  Weight: 138.32 kg

DRUGS (9)
  1. VICTOZA [Suspect]
     Indication: TYPE 2 DIABETES MELLITUS
     Dosage: 0.6 MG, QD
     Route: 058
     Dates: start: 20101129, end: 20101205
  2. VICTOZA [Suspect]
     Dosage: 1.2 MG, QD
     Route: 058
     Dates: start: 20101206, end: 20101213
  3. LISINOPRIL [Concomitant]
     Indication: HYPERTENSION
     Dosage: 40 MG, QD
     Route: 048
  4. METHYLDOPA [Concomitant]
     Indication: HYPERTENSION
     Dosage: 250 MG, BID
     Route: 048
  5. FUROSEMIDE [Concomitant]
     Indication: OEDEMA
     Dosage: 40 MG, QD
     Route: 048
  6. ALDACTONE [Concomitant]
     Indication: OEDEMA
     Dosage: 25 MG, QD
     Route: 048
  7. LEVOTHYROXINE [Concomitant]
     Indication: HYPOTHYROIDISM
     Dosage: 0.1 MG, QD
     Route: 048
  8. MILNACIPRAN [Concomitant]
     Indication: FIBROMYALGIA
     Dosage: 50 MG, BID
     Route: 048
  9. NEXIUM [Concomitant]
     Indication: PRODUCT USED FOR UNKNOWN INDICATION
     Dosage: 40 MG, QD
     Route: 048

REACTIONS (3)
  - NAUSEA [None]
  - PANCREATITIS [None]
  - WEIGHT DECREASED [None]
